FAERS Safety Report 8188621-4 (Version None)
Quarter: 2012Q1

REPORT INFORMATION
  Report Type: 
  Country: None (occurrence: None)
  Receive Date: 20120306
  Receipt Date: 20120301
  Transmission Date: 20120608
  Serious: Yes (Other)
  Sender: FDA-Public Use
  Company Number: GB-PFIZER INC-2012056235

PATIENT
  Age: 84 Year
  Sex: Female
  Weight: 54 kg

DRUGS (6)
  1. SIMVASTATIN [Concomitant]
     Indication: HYPERTENSION
  2. LYRICA [Suspect]
     Dosage: 75 MG, 2X/DAY
  3. AMLODIPINE [Concomitant]
     Indication: HYPERTENSION
     Dosage: 5 MG, 1X/DAY
     Dates: start: 20040101
  4. CO-BENELDOPA [Concomitant]
     Dosage: 62.5 MG, 4X/DAY
     Dates: start: 20100101
  5. INDAPAMIDE [Concomitant]
     Indication: HYPERTENSION
     Dosage: 1.5 MG, 1X/DAY
     Dates: start: 20050101
  6. SIMVASTATIN [Concomitant]
     Indication: HYPERLIPIDAEMIA
     Dosage: 40 MG, 1X/DAY
     Dates: start: 20020101

REACTIONS (2)
  - PARKINSON'S DISEASE [None]
  - MUSCULOSKELETAL STIFFNESS [None]
